FAERS Safety Report 7555000-X (Version None)
Quarter: 2011Q2

REPORT INFORMATION
  Report Type: 
  Country: None (occurrence: None)
  Receive Date: 20110617
  Receipt Date: 20110608
  Transmission Date: 20111010
  Serious: Yes (Hospitalization, Other)
  Sender: FDA-Public Use
  Company Number: US-ASTRAZENECA-2011SE35297

PATIENT
  Age: 956 Month
  Sex: Female

DRUGS (21)
  1. HYDROCODON-ACETAMINOPHEN [Concomitant]
     Indication: PAIN
     Dosage: 5-500 MG EVERY 6 HOURS AS NEEDED
     Route: 048
  2. LEVOTHYROXINE SODIUM [Concomitant]
     Dosage: 137 MCG EVERY OTHER DAY WITH 125 MCG
     Route: 048
  3. AZITHROMYCIN [Concomitant]
     Dosage: 1 ON 1 DAY THEN 2 ON 2 DAYS
     Route: 048
  4. KLOR-CON [Concomitant]
  5. OXYBUTYNIN CL [Concomitant]
     Route: 048
  6. CHLORHEXIDINE GLUCONATE [Concomitant]
  7. CICLOPIROX [Concomitant]
  8. LOVENOX [Concomitant]
  9. WARFARIN SODIUM [Concomitant]
     Route: 048
  10. BENAZEPRIL HYDROCHLORIDE [Concomitant]
     Route: 048
  11. FLUZONE [Concomitant]
     Dosage: SYRINGE
     Route: 030
  12. SEROQUEL XR [Suspect]
     Route: 048
  13. PREVIDENT [Concomitant]
     Dosage: DENTAL RINSE
  14. RESTASIS [Concomitant]
     Dosage: ONE DROP IN BOTH EYES
     Route: 047
  15. ZOLPIDEM TARTRATE [Concomitant]
     Route: 048
  16. IMIPRAMINE HCL [Concomitant]
     Route: 048
  17. DIGOXIN [Concomitant]
     Route: 048
  18. LEVAQUIN [Concomitant]
     Route: 048
  19. ABILIFY [Suspect]
  20. FEMHRT [Concomitant]
     Dosage: 1-5 TABLET DAILY
     Route: 048
  21. CEPHALEXIN [Concomitant]
     Route: 048

REACTIONS (8)
  - UTERINE HAEMORRHAGE [None]
  - BASAL CELL CARCINOMA [None]
  - CATARACT OPERATION [None]
  - SKIN NEOPLASM EXCISION [None]
  - PNEUMONIA [None]
  - UTERINE DILATION AND CURETTAGE [None]
  - MICROGRAPHIC SKIN SURGERY [None]
  - TOOTH EXTRACTION [None]
